FAERS Safety Report 7002216-7 (Version None)
Quarter: 2010Q3

REPORT INFORMATION
  Report Type: 
  Country: None (occurrence: None)
  Receive Date: 20100917
  Receipt Date: 20100917
  Transmission Date: 20110219
  Serious: Yes (Other)
  Sender: FDA-Public Use
  Company Number: None

PATIENT
  Age: 58 Year
  Sex: Female
  Weight: 88.4514 kg

DRUGS (3)
  1. TOBRAMYCIN [Suspect]
     Indication: CHALAZION
     Dosage: 1 DROP 4X DAILY
     Dates: start: 20100824, end: 20100827
  2. ERYTHROMYCIN [Suspect]
     Indication: ADVERSE DRUG REACTION
     Dosage: 1/2 ^ STRIP OF OINTMENT AT BED TIME
     Dates: start: 20100830, end: 20100901
  3. ERYTHROMYCIN [Suspect]
     Indication: CHALAZION
     Dosage: 1/2 ^ STRIP OF OINTMENT AT BED TIME
     Dates: start: 20100830, end: 20100901

REACTIONS (5)
  - EYE DISCHARGE [None]
  - EYELID OEDEMA [None]
  - PERIORBITAL OEDEMA [None]
  - SWELLING FACE [None]
  - VISION BLURRED [None]
